FAERS Safety Report 4677551-8 (Version None)
Quarter: 2005Q2

REPORT INFORMATION
  Report Type: 
  Country: None (occurrence: None)
  Receive Date: 20050527
  Receipt Date: 20050527
  Transmission Date: 20051028
  Serious: Yes (Other)
  Sender: FDA-Public Use
  Company Number: None

PATIENT
  Age: 79 Year
  Sex: Female
  Weight: 50.5 kg

DRUGS (20)
  1. ENBREL [Suspect]
     Indication: RHEUMATOID ARTHRITIS
     Dosage: 25 MG Q WEEK SQ
     Route: 058
     Dates: start: 20050518, end: 20050518
  2. CALCITONIN [Concomitant]
  3. PREDNISONE TAB [Concomitant]
  4. DUONEB [Concomitant]
  5. MORPHINE [Concomitant]
  6. CALCIUM GLUCONATE [Concomitant]
  7. NOVOLOG [Concomitant]
  8. IMODIUM [Concomitant]
  9. PROVENTIL [Concomitant]
  10. SYNTHROID [Concomitant]
  11. VERAPAMIL [Concomitant]
  12. ATIVAN [Concomitant]
  13. PROTONIX [Concomitant]
  14. TYLENOL (CAPLET) [Concomitant]
  15. PHENERGAN [Concomitant]
  16. THEOPHYLLINE [Concomitant]
  17. COUMADIN [Concomitant]
  18. ALDACTONE [Concomitant]
  19. ATACAND [Concomitant]
  20. MAGNESIUM [Concomitant]

REACTIONS (4)
  - ATRIAL FIBRILLATION [None]
  - CHEST PAIN [None]
  - HISTIOCYTOSIS HAEMATOPHAGIC [None]
  - LABORATORY TEST ABNORMAL [None]
